FAERS Safety Report 20533250 (Version 1)
Quarter: 2022Q1

REPORT INFORMATION
  Report Type: Spontaneous
  Country: US (occurrence: None)
  Receive Date: 20220301
  Receipt Date: 20220301
  Transmission Date: 20220423
  Serious: No
  Sender: FDA-Public Use
  Company Number: None

PATIENT
  Sex: Male

DRUGS (11)
  1. EVEROLIMUS [Suspect]
     Active Substance: EVEROLIMUS
     Indication: Renal cancer
     Dosage: FREQUENCY : DAILY;?
     Route: 048
     Dates: start: 20210303
  2. LOPERAMIDE CARVEDILOL [Concomitant]
  3. CLOPIDOGREL [Concomitant]
  4. DIPHENOLXYLATE-ATROPINE [Concomitant]
  5. ERGOCALCIFEROL FINASTERIDE [Concomitant]
  6. GLIMEPIRIDE [Concomitant]
  7. LISINOPRIL [Concomitant]
     Active Substance: LISINOPRIL
  8. ONGLYZA [Concomitant]
  9. PIOGLITAZONE [Concomitant]
  10. PRAVASTATIN [Concomitant]
  11. NOVOTWIST [Concomitant]

REACTIONS (1)
  - Cardiac failure congestive [None]
